FAERS Safety Report 18197515 (Version 2)
Quarter: 2020Q4

REPORT INFORMATION
  Report Type: Spontaneous
  Country: NL (occurrence: NL)
  Receive Date: 20200826
  Receipt Date: 20201205
  Transmission Date: 20210113
  Serious: Yes (Hospitalization, Other)
  Sender: FDA-Public Use
  Company Number: NL-AUROBINDO-AUR-APL-2020-044716

PATIENT
  Age: 83 Year
  Sex: Male
  Weight: 75 kg

DRUGS (13)
  1. FLUCLOXACILLIN [Suspect]
     Active Substance: FLUCLOXACILLIN
     Indication: ARTHRITIS INFECTIVE
     Dosage: UNK
     Route: 042
  2. METOPROLOL. [Suspect]
     Active Substance: METOPROLOL
     Indication: ATRIAL FIBRILLATION
  3. CHLORTALIDONE [Suspect]
     Active Substance: CHLORTHALIDONE
     Indication: HYPERTENSION
     Dosage: 25 MILLIGRAM
     Route: 065
  4. ACENOCOUMAROL [Suspect]
     Active Substance: ACENOCOUMAROL
     Indication: HYPERTENSION
     Dosage: UNK
     Route: 065
  5. ACENOCOUMAROL [Suspect]
     Active Substance: ACENOCOUMAROL
     Indication: ATRIAL FIBRILLATION
  6. QUINAPRIL. [Suspect]
     Active Substance: QUINAPRIL
     Indication: HYPERTENSION
     Dosage: 10 MILLIGRAM, ONCE A DAY
     Route: 065
  7. QUINAPRIL. [Suspect]
     Active Substance: QUINAPRIL
     Indication: ATRIAL FIBRILLATION
  8. GENTAMICIN. [Suspect]
     Active Substance: GENTAMICIN
     Indication: ARTHRITIS INFECTIVE
     Dosage: 2 DOSAGE FORM, 130 MG (2 SPONGES)
     Route: 014
     Dates: start: 20170608
  9. FLUCLOXACILLIN [Suspect]
     Active Substance: FLUCLOXACILLIN
     Indication: DEVICE RELATED INFECTION
  10. METOPROLOL. [Suspect]
     Active Substance: METOPROLOL
     Indication: HYPERTENSION
     Dosage: 100 MILLIGRAM, ONCE A DAY
     Route: 065
  11. CHLORTALIDONE [Suspect]
     Active Substance: CHLORTHALIDONE
     Indication: ATRIAL FIBRILLATION
  12. GENTAMICIN. [Suspect]
     Active Substance: GENTAMICIN
     Indication: JOINT DEBRIDEMENT
  13. LIPITOR [Concomitant]
     Active Substance: ATORVASTATIN CALCIUM
     Indication: HYPERCHOLESTEROLAEMIA
     Dosage: 10 MILLIGRAM, ONCE A DAY
     Route: 065

REACTIONS (7)
  - Acute kidney injury [Recovered/Resolved]
  - Renal tubular necrosis [Recovered/Resolved]
  - Hypotension [Unknown]
  - Toxicity to various agents [Recovered/Resolved]
  - Nephropathy toxic [Recovered/Resolved]
  - Vomiting [Unknown]
  - Malaise [Unknown]

NARRATIVE: CASE EVENT DATE: 201706
